FAERS Safety Report 4392848-7 (Version None)
Quarter: 2004Q3

REPORT INFORMATION
  Report Type: 
  Country: None (occurrence: None)
  Receive Date: 20040708
  Receipt Date: 20040628
  Transmission Date: 20050211
  Serious: Yes (Hospitalization)
  Sender: FDA-Public Use
  Company Number: PHBS2004IT08580

PATIENT
  Age: 42 Year
  Sex: Female

DRUGS (4)
  1. VOLTFAST [Suspect]
     Indication: RHEUMATOID ARTHRITIS
     Dosage: 50 MG/DAY
     Route: 048
     Dates: start: 20040622
  2. COAPROVEN [Suspect]
     Indication: ESSENTIAL HYPERTENSION
     Dosage: 300 MG/DAY
     Route: 048
     Dates: start: 20040622
  3. SANDIMMUNE [Concomitant]
  4. METHOTREXATE [Concomitant]

REACTIONS (1)
  - SKIN DESQUAMATION [None]
